FAERS Safety Report 4601907-2 (Version None)
Quarter: 2005Q2

REPORT INFORMATION
  Report Type: 
  Country: None (occurrence: None)
  Receive Date: 20050215
  Receipt Date: 20041210
  Transmission Date: 20051028
  Serious: Yes (Hospitalization)
  Sender: FDA-Public Use
  Company Number: 389059

PATIENT
  Age: 71 Year
  Sex: Female

DRUGS (7)
  1. PEG-INTERFERON ALFA NOS (PEG-INTERFERON ALFA NOS) [Suspect]
     Indication: HEPATITIS C
     Dosage: 180 MCG 1 PER WEEK
  2. RIBAVIRIN [Suspect]
     Indication: HEPATITIS C
     Dosage: 800 MG DAILY 1 PER DAY
  3. ERYTHROPOIETIN (EPOETIN NOS) [Concomitant]
  4. FILGRASTIM (FILGRASTIM) [Concomitant]
  5. PREMARIN [Concomitant]
  6. AMILORIDE HYDROCHLORIDE (AMILORIDE HYDROCHLORIDE) [Concomitant]
  7. SYNTHROID [Concomitant]

REACTIONS (7)
  - ADVERSE EVENT [None]
  - COUGH [None]
  - DEHYDRATION [None]
  - DIARRHOEA [None]
  - FATIGUE [None]
  - NAUSEA [None]
  - PNEUMONITIS [None]
